FAERS Safety Report 7900660-4 (Version None)
Quarter: 2011Q4

REPORT INFORMATION
  Report Type: 
  Country: None (occurrence: None)
  Receive Date: 20111108
  Receipt Date: 20111102
  Transmission Date: 20120403
  Serious: Yes (Hospitalization)
  Sender: FDA-Public Use
  Company Number: ES-SHIRE-SPV1-2011-01369

PATIENT
  Age: 69 Year
  Sex: Male

DRUGS (1)
  1. ANAGRELIDE HYDROCHLORIDE [Suspect]
     Indication: ESSENTIAL THROMBOCYTHAEMIA
     Dosage: 2 MG, 1X/DAY:QD
     Route: 048
     Dates: start: 20110201

REACTIONS (1)
  - ACUTE CORONARY SYNDROME [None]
